FAERS Safety Report 20778196 (Version 1)
Quarter: 2022Q2

REPORT INFORMATION
  Report Type: Spontaneous
  Country: DE (occurrence: DE)
  Receive Date: 20220503
  Receipt Date: 20220503
  Transmission Date: 20220721
  Serious: Yes (Death)
  Sender: FDA-Public Use
  Company Number: DE-BAYER-2022A063004

PATIENT
  Age: 59 Year
  Sex: Female

DRUGS (1)
  1. BETAFERON [Suspect]
     Active Substance: INTERFERON BETA-1B
     Dosage: TREATED FOR 25 YEARS
     Route: 042

REACTIONS (2)
  - Cerebral haemorrhage [Fatal]
  - Malaise [None]
